FAERS Safety Report 6299073-3 (Version None)
Quarter: 2009Q3

REPORT INFORMATION
  Report Type: 
  Country: None (occurrence: None)
  Receive Date: 20090806
  Receipt Date: 20080317
  Transmission Date: 20100115
  Serious: Yes (Other)
  Sender: FDA-Public Use
  Company Number: US-ASTRAZENECA-2007UW06041

PATIENT
  Age: 12399 Day
  Sex: Female
  Weight: 83.5 kg

DRUGS (17)
  1. SEROQUEL [Suspect]
     Indication: BIPOLAR DISORDER
     Dosage: 25-200 MG
     Route: 048
     Dates: start: 19990201
  2. SEROQUEL [Suspect]
     Indication: DEPRESSION
     Dosage: 25-200 MG
     Route: 048
     Dates: start: 19990201
  3. SEROQUEL [Suspect]
     Dosage: 25-175 MG
     Route: 048
     Dates: start: 20031119
  4. SEROQUEL [Suspect]
     Dosage: 25-175 MG
     Route: 048
     Dates: start: 20031119
  5. MOTRIN [Concomitant]
     Dates: start: 20031119
  6. TRILEPTAL [Concomitant]
     Dates: start: 20031119
  7. LANTUS [Concomitant]
     Dosage: 15-40 UNITS
     Dates: start: 20021125
  8. HUMALOG [Concomitant]
     Dates: start: 20031119
  9. LEXAPRO [Concomitant]
     Dosage: 10-20 MG
     Dates: start: 20031119
  10. ZELNORM [Concomitant]
     Dates: start: 20031119
  11. COUMADIN [Concomitant]
     Dates: start: 19991205
  12. LOPID [Concomitant]
     Dates: start: 19991205
  13. CAPOTEN [Concomitant]
     Dates: start: 19991205
  14. AVANDIA [Concomitant]
     Dates: start: 20000816
  15. HUMULIN 70/30 [Concomitant]
     Dosage: 13-30 UNITS
     Dates: start: 20000816
  16. PAXIL [Concomitant]
     Route: 048
     Dates: start: 20000816
  17. ATIVAN [Concomitant]
     Dates: start: 20000816

REACTIONS (6)
  - DIABETES MELLITUS INADEQUATE CONTROL [None]
  - DIABETIC KETOACIDOSIS [None]
  - DIABETIC NEUROPATHY [None]
  - PANCREATITIS ACUTE [None]
  - TYPE 1 DIABETES MELLITUS [None]
  - TYPE 2 DIABETES MELLITUS [None]
